FAERS Safety Report 25372665 (Version 1)
Quarter: 2025Q2

REPORT INFORMATION
  Report Type: Spontaneous
  Country: US (occurrence: US)
  Receive Date: 20250529
  Receipt Date: 20250529
  Transmission Date: 20250717
  Serious: Yes (Other)
  Sender: BIONPHARMA INC.
  Company Number: US-Bion-014973

PATIENT
  Age: 89 Year
  Sex: Female

DRUGS (1)
  1. NAPROXEN SODIUM [Suspect]
     Active Substance: NAPROXEN SODIUM
     Indication: Pain
     Route: 048
     Dates: start: 20250221, end: 20250221

REACTIONS (1)
  - Choking [Recovered/Resolved]
